FAERS Safety Report 25203481 (Version 1)
Quarter: 2025Q2

REPORT INFORMATION
  Report Type: Spontaneous
  Country: FR (occurrence: FR)
  Receive Date: 20250416
  Receipt Date: 20250416
  Transmission Date: 20250716
  Serious: Yes (Death)
  Sender: AZURITY PHARMACEUTICALS
  Company Number: FR-AZURITY PHARMACEUTICALS, INC.-AZR202504-001058

PATIENT
  Age: 98 Year
  Sex: Male

DRUGS (2)
  1. TRIPTORELIN [Suspect]
     Active Substance: TRIPTORELIN
     Indication: Prostate cancer
     Route: 030
  2. TRIPTORELIN [Suspect]
     Active Substance: TRIPTORELIN
     Route: 058

REACTIONS (3)
  - Fall [Fatal]
  - Wrong technique in product usage process [Unknown]
  - Needle issue [Unknown]
